FAERS Safety Report 11024872 (Version 2)
Quarter: 2015Q2

REPORT INFORMATION
  Report Type: Spontaneous
  Country: JP (occurrence: JP)
  Receive Date: 20150414
  Receipt Date: 20150416
  Transmission Date: 20150821
  Serious: Yes (Death)
  Sender: FDA-Public Use
  Company Number: JP-JNJFOC-20150318319

PATIENT
  Age: 9 Decade
  Sex: Female

DRUGS (1)
  1. DUROTEP MT [Suspect]
     Active Substance: FENTANYL
     Indication: CANCER PAIN
     Route: 062
     Dates: start: 20150313, end: 20150316

REACTIONS (4)
  - Neoplasm malignant [Fatal]
  - Somnolence [Unknown]
  - Therapy naive [Unknown]
  - Dysarthria [Unknown]

NARRATIVE: CASE EVENT DATE: 20150313
